FAERS Safety Report 21974455 (Version 1)
Quarter: 2023Q1

REPORT INFORMATION
  Report Type: Spontaneous
  Country: US (occurrence: None)
  Receive Date: 20230208
  Receipt Date: 20230208
  Transmission Date: 20230418
  Serious: Yes (Life-Threatening, Other)
  Sender: FDA-Public Use
  Company Number: None

PATIENT
  Age: 47 Year
  Sex: Female
  Weight: 67.5 kg

DRUGS (1)
  1. BENZONATATE [Suspect]
     Active Substance: BENZONATATE
     Indication: Bronchitis
     Dosage: OTHER QUANTITY : 60 TABLET(S);?FREQUENCY : 3 TIMES A DAY;?
     Route: 048
     Dates: start: 20230201, end: 20230207

REACTIONS (6)
  - Nausea [None]
  - Vomiting [None]
  - Pharyngeal hypoaesthesia [None]
  - Aspiration [None]
  - Dysphagia [None]
  - Respiration abnormal [None]

NARRATIVE: CASE EVENT DATE: 20230207
